FAERS Safety Report 6978276-6 (Version None)
Quarter: 2010Q3

REPORT INFORMATION
  Report Type: 
  Country: None (occurrence: None)
  Receive Date: 20100913
  Receipt Date: 20100907
  Transmission Date: 20110219
  Serious: Yes (Hospitalization)
  Sender: FDA-Public Use
  Company Number: JP-EISAI INC.-E2090-01300-SPO-JP

PATIENT
  Sex: Male

DRUGS (3)
  1. EXCEGRAN [Suspect]
     Indication: EPILEPSY
     Route: 048
     Dates: start: 20100724, end: 20100826
  2. VANCOMYCIN [Concomitant]
  3. LACB [Concomitant]

REACTIONS (2)
  - OEDEMA [None]
  - RASH GENERALISED [None]
